FAERS Safety Report 9464186 (Version 1)
Quarter: 2013Q3

REPORT INFORMATION
  Report Type: Spontaneous
  Country: US (occurrence: US)
  Receive Date: 20130819
  Receipt Date: 20130819
  Transmission Date: 20140515
  Serious: No
  Sender: FDA-Public Use
  Company Number: US-TEVA-423418USA

PATIENT
  Age: 50 Year
  Sex: Female

DRUGS (2)
  1. QNASL [Suspect]
     Indication: RHINITIS ALLERGIC
     Route: 055
     Dates: start: 201303, end: 201307
  2. QNASL [Suspect]
     Route: 055
     Dates: start: 201307

REACTIONS (3)
  - Nasal septum ulceration [Recovered/Resolved]
  - Pain [Recovered/Resolved]
  - Scab [Recovered/Resolved]
